FAERS Safety Report 17483409 (Version 1)
Quarter: 2020Q1

REPORT INFORMATION
  Report Type: Report from Study
  Country: US (occurrence: US)
  Receive Date: 20200302
  Receipt Date: 20200302
  Transmission Date: 20200409
  Serious: Yes (Death)
  Sender: FDA-Public Use
  Company Number: US-PFIZER INC-2020089164

PATIENT

DRUGS (9)
  1. PACLITAXEL. [Suspect]
     Active Substance: PACLITAXEL
     Indication: SMALL CELL LUNG CANCER
     Dosage: 175 MG/M2, GIVEN OVER 3 HOURS ON DAY 3, EVERY 21 DAYS FOR 6 CYCLES
     Route: 042
  2. DEXAMETHASONE. [Concomitant]
     Active Substance: DEXAMETHASONE
     Indication: PREMEDICATION
     Dosage: 20 MG, UNK (ORALLY OR INTRAVENOUSLY (I.V.) GIVEN 12 AND 6 HOURS PRIOR TO THE INFUSION)
  3. CARBOPLATIN. [Suspect]
     Active Substance: CARBOPLATIN
     Indication: SMALL CELL LUNG CANCER
     Dosage: AUC = 6, GIVEN OVER 30 MINUTES ON DAY 1, EVERY 21 DAYS FOR 6 CYCLES
     Route: 042
  4. ETOPOSIDE. [Suspect]
     Active Substance: ETOPOSIDE
     Indication: SMALL CELL LUNG CANCER
     Dosage: 100 MG/M2, GIVEN OVER 1 HOUR ON DAYS 1-3, EVERY 21 DAYS FOR 6 CYCLES
     Route: 042
  5. GRANULOCYTE COLONY STIMULATING FACTOR [Concomitant]
     Active Substance: GRANULOCYTE COLONY-STIMULATING FACTOR NOS
     Indication: PREMEDICATION
     Dosage: 5 UG/KG, DAILY (ON DAY 4)
     Route: 058
  6. GRANISETRON [Concomitant]
     Active Substance: GRANISETRON
     Dosage: 2 MG, UNK (30 MINUTES PRIOR TO CARBOPLATIN)
     Route: 048
  7. DIPHENHYDRAMINE. [Concomitant]
     Active Substance: DIPHENHYDRAMINE
     Indication: PREMEDICATION
     Dosage: 50 MG, UNK (30 MINUTES BEFORE PACLITAXEL)
     Route: 042
  8. RANITIDINE. [Concomitant]
     Active Substance: RANITIDINE
     Indication: PREMEDICATION
     Dosage: 50 MG, UNK (30 MINUTES PRIOR TO PACLITAXEL INFUSION)
     Route: 042
  9. SODIUM CHLORIDE. [Concomitant]
     Active Substance: SODIUM CHLORIDE
     Dosage: UNK (NORMAL SALINE)

REACTIONS (2)
  - Central nervous system haemorrhage [Fatal]
  - Thrombocytopenia [Fatal]
